FAERS Safety Report 4424006-1 (Version None)
Quarter: 2004Q3

REPORT INFORMATION
  Report Type: 
  Country: None (occurrence: None)
  Receive Date: 20040812
  Receipt Date: 20040514
  Transmission Date: 20050211
  Serious: Yes (Hospitalization)
  Sender: FDA-Public Use
  Company Number: 200415152GDDC

PATIENT
  Age: 45 Year
  Sex: Female
  Weight: 58 kg

DRUGS (6)
  1. TAXOTERE [Suspect]
     Indication: BREAST CANCER
     Route: 042
     Dates: start: 20040126, end: 20040510
  2. EPIRUBICIN [Suspect]
     Indication: BREAST CANCER
     Route: 042
     Dates: start: 20040329, end: 20040510
  3. LISINOPRIL [Concomitant]
  4. SULFASALAZINE [Concomitant]
  5. RANITIDINE [Concomitant]
  6. ACETAMINOPHEN [Concomitant]

REACTIONS (3)
  - HEADACHE [None]
  - PYREXIA [None]
  - VOMITING [None]
